FAERS Safety Report 17165457 (Version 4)
Quarter: 2021Q1

REPORT INFORMATION
  Report Type: Report from Study
  Country: None (occurrence: US)
  Receive Date: 20191217
  Receipt Date: 20210305
  Transmission Date: 20210419
  Serious: Yes (Hospitalization, Other)
  Sender: FDA-Public Use
  Company Number: US-ABBVIE-19K-163-3191605-00

PATIENT
  Age: 71 Year
  Sex: Male

DRUGS (1)
  1. VENCLEXTA [Suspect]
     Active Substance: VENETOCLAX
     Indication: MYELODYSPLASTIC SYNDROME
     Dosage: WITH BREAKFAST
     Route: 048
     Dates: start: 20191217

REACTIONS (6)
  - Cytopenia [Unknown]
  - Visual impairment [Unknown]
  - Platelet count decreased [Unknown]
  - Off label use [Unknown]
  - Myelodysplastic syndrome [Not Recovered/Not Resolved]
  - Hospice care [Unknown]

NARRATIVE: CASE EVENT DATE: 202004
